FAERS Safety Report 23424117 (Version 3)
Quarter: 2024Q2

REPORT INFORMATION
  Report Type: Spontaneous
  Country: PT (occurrence: PT)
  Receive Date: 20240120
  Receipt Date: 20240420
  Transmission Date: 20240716
  Serious: Yes (Other)
  Sender: FDA-Public Use
  Company Number: PT-AUROBINDO-AUR-APL-2024-001991

PATIENT
  Age: 55 Year
  Sex: Male

DRUGS (5)
  1. OXALIPLATIN [Suspect]
     Active Substance: OXALIPLATIN
     Indication: Malignant neoplasm of ampulla of Vater
     Dosage: UNK (2 CYCLES)
     Route: 065
     Dates: end: 201201
  2. OXALIPLATIN [Suspect]
     Active Substance: OXALIPLATIN
     Dosage: UNK
     Route: 065
     Dates: start: 201205, end: 201411
  3. GEMCITABINE [Suspect]
     Active Substance: GEMCITABINE
     Indication: Malignant neoplasm of ampulla of Vater
     Dosage: UNK (2 CYCLES)
     Route: 065
     Dates: end: 201201
  4. GEMCITABINE [Suspect]
     Active Substance: GEMCITABINE
     Dosage: 2 CYCLES
     Route: 065
     Dates: end: 201204
  5. GEMCITABINE [Suspect]
     Active Substance: GEMCITABINE
     Dosage: UNK
     Route: 065
     Dates: start: 201205

REACTIONS (3)
  - Drug ineffective [Unknown]
  - Asthenia [Unknown]
  - Off label use [Unknown]
